FAERS Safety Report 6099048-3 (Version None)
Quarter: 2009Q1

REPORT INFORMATION
  Report Type: 
  Country: None (occurrence: None)
  Receive Date: 20090302
  Receipt Date: 20090226
  Transmission Date: 20090719
  Serious: Yes (Hospitalization)
  Sender: FDA-Public Use
  Company Number: US-BRISTOL-MYERS SQUIBB COMPANY-14523708

PATIENT
  Age: 52 Year
  Sex: Female

DRUGS (4)
  1. CYTOXAN [Suspect]
     Indication: BREAST CANCER
     Dosage: INITIATED ON 27JAN09.
     Route: 042
     Dates: start: 20090210, end: 20090210
  2. ABRAXANE [Suspect]
     Indication: BREAST CANCER
  3. AVASTIN [Suspect]
     Indication: BREAST CANCER
     Dosage: INITIATED ON 27JAN09.
     Route: 042
     Dates: start: 20090210, end: 20090210
  4. ADRIAMYCIN PFS [Suspect]
     Indication: BREAST CANCER
     Dosage: INITIATED ON 27JAN09.
     Route: 042
     Dates: start: 20090210, end: 20090210

REACTIONS (4)
  - DIARRHOEA [None]
  - FEBRILE NEUTROPENIA [None]
  - MUCOSAL INFLAMMATION [None]
  - PROCTALGIA [None]
